FAERS Safety Report 9612922 (Version 2)
Quarter: 2013Q4

REPORT INFORMATION
  Report Type: Spontaneous
  Country: US (occurrence: US)
  Receive Date: 20131010
  Receipt Date: 20131217
  Transmission Date: 20140711
  Serious: No
  Sender: FDA-Public Use
  Company Number: US-TEVA-437349USA

PATIENT
  Age: 71 Year
  Sex: Female
  Weight: 74.91 kg

DRUGS (2)
  1. COPAXONE [Suspect]
     Indication: RELAPSING-REMITTING MULTIPLE SCLEROSIS
     Dates: end: 201310
  2. NOT SPECIFIED [Concomitant]
     Indication: HYPOTHYROIDISM

REACTIONS (4)
  - Axillary mass [Not Recovered/Not Resolved]
  - Pruritus [Not Recovered/Not Resolved]
  - Injection site reaction [Unknown]
  - Injection site pain [Unknown]
